FAERS Safety Report 8032838-6 (Version None)
Quarter: 2012Q1

REPORT INFORMATION
  Report Type: 
  Country: None (occurrence: None)
  Receive Date: 20120110
  Receipt Date: 20120103
  Transmission Date: 20120608
  Serious: Yes (Death, Hospitalization, Other)
  Sender: FDA-Public Use
  Company Number: TR-CELGENEUS-161-C5013-11122666

PATIENT
  Sex: Male

DRUGS (7)
  1. ANTIBIOTICS [Concomitant]
     Route: 065
  2. LENALIDOMIDE [Suspect]
     Dosage: 10 MILLIGRAM
     Route: 048
     Dates: start: 20110516
  3. LENALIDOMIDE [Suspect]
     Dosage: 5 MILLIGRAM
     Route: 048
     Dates: start: 20110719
  4. LENALIDOMIDE [Suspect]
     Dosage: 5 MILLIGRAM
     Route: 048
     Dates: start: 20110814, end: 20110819
  5. DEFERASIROX [Concomitant]
     Route: 065
  6. LENALIDOMIDE [Suspect]
     Indication: MYELOFIBROSIS
     Dosage: 5 MILLIGRAM
     Route: 048
     Dates: start: 20110425
  7. WARFARIN SODIUM [Concomitant]
     Route: 065

REACTIONS (4)
  - RESPIRATORY FAILURE [None]
  - CARDIAC ARREST [None]
  - SEPSIS [None]
  - PNEUMONIA [None]
